FAERS Safety Report 22668135 (Version 5)
Quarter: 2024Q1

REPORT INFORMATION
  Report Type: Spontaneous
  Country: PE (occurrence: PE)
  Receive Date: 20230704
  Receipt Date: 20240109
  Transmission Date: 20240410
  Serious: Yes (Other)
  Sender: FDA-Public Use
  Company Number: PE-PFIZER INC-PV202300012375

PATIENT
  Age: 59 Year
  Sex: Female

DRUGS (3)
  1. ENBREL [Suspect]
     Active Substance: ETANERCEPT
     Indication: Product used for unknown indication
     Dosage: UNK UNK, EVERY 7 DAYS
     Route: 058
  2. ENBREL [Suspect]
     Active Substance: ETANERCEPT
     Dosage: UNK UNK, EVERY 10 DAYS
     Route: 058
  3. ENBREL [Suspect]
     Active Substance: ETANERCEPT
     Dosage: UNK UNK, WEEKLY
     Route: 058
     Dates: start: 202307, end: 20231210

REACTIONS (9)
  - Sjogren^s syndrome [Unknown]
  - Feeling abnormal [Unknown]
  - Pain in extremity [Unknown]
  - Decreased immune responsiveness [Unknown]
  - Therapeutic response decreased [Unknown]
  - Intervertebral disc protrusion [Unknown]
  - Off label use [Unknown]
  - Arthralgia [Unknown]
  - Pain [Unknown]
